FAERS Safety Report 5053001-7 (Version None)
Quarter: 2006Q3

REPORT INFORMATION
  Report Type: 
  Country: None (occurrence: None)
  Receive Date: 20060712
  Receipt Date: 20040712
  Transmission Date: 20061208
  Serious: Yes (Hospitalization)
  Sender: FDA-Public Use
  Company Number: HP20041134

PATIENT
  Sex: Male

DRUGS (2)
  1. PANAFIL OINTMENT (HEALTHPOINT, LTD.) [Suspect]
     Indication: PROMOTION OF WOUND HEALING
     Dosage: 1X DAILY (060)
     Dates: start: 20040621, end: 20040724
  2. REGRANEX [Suspect]
     Indication: PROMOTION OF WOUND HEALING
     Dosage: (060)
     Dates: start: 20040621, end: 20040724

REACTIONS (4)
  - HEART RATE INCREASED [None]
  - LOSS OF CONSCIOUSNESS [None]
  - RESPIRATORY DISORDER [None]
  - SEPSIS [None]
